FAERS Safety Report 8221925 (Version 2)
Quarter: 2013Q2

REPORT INFORMATION
  Report Type: Report from Study
  Country: MX (occurrence: MX)
  Receive Date: 20111102
  Receipt Date: 20130621
  Transmission Date: 20140414
  Serious: Yes (Hospitalization, Other)
  Sender: FDA-Public Use
  Company Number: PHHY2011MX94844

PATIENT
  Age: 71 Year
  Sex: Female

DRUGS (1)
  1. CO-DIOVAN [Suspect]
     Indication: HYPERTENSION
     Dosage: 1 DF, (80/12.5 MG PER DAY)
     Route: 048
     Dates: start: 201008

REACTIONS (3)
  - Sensation of heaviness [Not Recovered/Not Resolved]
  - Ovarian disorder [Recovered/Resolved]
  - Hypertension [Not Recovered/Not Resolved]
